FAERS Safety Report 12540210 (Version 2)
Quarter: 2016Q3

REPORT INFORMATION
  Report Type: Spontaneous
  Country: US (occurrence: US)
  Receive Date: 20160708
  Receipt Date: 20160812
  Transmission Date: 20161109
  Serious: Yes (Life-Threatening, Hospitalization)
  Sender: FDA-Public Use
  Company Number: US-PFIZER INC-2016326377

PATIENT
  Age: 60 Year
  Sex: Female
  Weight: 103 kg

DRUGS (34)
  1. PHYTOMENADIONE [Suspect]
     Active Substance: PHYTONADIONE
     Indication: COAGULOPATHY
  2. DEXTROSE. [Concomitant]
     Active Substance: DEXTROSE
     Indication: BLOOD GLUCOSE DECREASED
     Dosage: 25 ML, AS NEEDED (DEXTROSE 50%)
     Route: 042
     Dates: start: 20160627, end: 20160708
  3. MEPHYTON [Concomitant]
     Active Substance: PHYTONADIONE
     Dosage: 5 MG, SINGLE
     Route: 048
     Dates: start: 20160628, end: 20160628
  4. MIRALAX [Concomitant]
     Active Substance: POLYETHYLENE GLYCOL 3350
     Dosage: 17 G, DAILY
     Route: 048
     Dates: start: 20160629
  5. TYLENOL [Concomitant]
     Active Substance: ACETAMINOPHEN
     Indication: PAIN
     Dosage: 325-650 MG EVERY 4 HOURS PRN
     Route: 054
     Dates: start: 20160627
  6. TYLENOL [Concomitant]
     Active Substance: ACETAMINOPHEN
     Indication: PYREXIA
  7. LANOXIN [Concomitant]
     Active Substance: DIGOXIN
     Dosage: 500 UG, SINGLE
     Route: 042
     Dates: start: 20160601, end: 20160601
  8. ATROPINE. [Concomitant]
     Active Substance: ATROPINE
     Indication: BRADYCARDIA
     Dosage: 0.1MG/ML; 0.5-1MG, AS NEEDED
     Route: 042
     Dates: start: 20160627
  9. EMLA [Concomitant]
     Active Substance: LIDOCAINE\PRILOCAINE
     Indication: PAIN
     Dosage: APPLY 30-60 MINUTES PRIOR TO HD, AS NEEDED
     Route: 061
     Dates: start: 20160628
  10. ZOSYN [Concomitant]
     Active Substance: PIPERACILLIN SODIUM\TAZOBACTAM SODIUM
     Dosage: 2.25 G, 3X/DAY (2.25 G IN 0.9% SODIUM CHLORIDE)
     Route: 042
     Dates: start: 20160627, end: 20160704
  11. SODIUM CHLORIDE. [Concomitant]
     Active Substance: SODIUM CHLORIDE
     Dosage: 500 ML, SINGLE (0.9% SODIUM CHLORIDE 500 ML BOLUS)
     Route: 042
     Dates: start: 20160627, end: 20160627
  12. COUMADINE [Concomitant]
     Active Substance: WARFARIN SODIUM
     Dosage: 1-2 MG, DAILY
     Route: 048
     Dates: start: 20160629, end: 20160629
  13. LANOXIN [Concomitant]
     Active Substance: DIGOXIN
     Dosage: 500 MG, SINGLE
     Dates: start: 20160627, end: 20160627
  14. ZOFRAN [Concomitant]
     Active Substance: ONDANSETRON HYDROCHLORIDE
     Indication: NAUSEA
     Dosage: 4 MG, AS NEEDED (EVERY 4 HOURS)
     Route: 042
     Dates: start: 20160627
  15. SODIUM CHLORIDE. [Concomitant]
     Active Substance: SODIUM CHLORIDE
     Dosage: 1000 ML, SINGLE (0.9% SODIUM CHLORIDE 1000ML BOLUS)
     Route: 042
     Dates: start: 20160627, end: 20160627
  16. TYLENOL [Concomitant]
     Active Substance: ACETAMINOPHEN
     Indication: PAIN
     Dosage: 325-650 MG EVERY 4 HOURS PRN
     Route: 048
     Dates: start: 20160627
  17. HUMALOG [Concomitant]
     Active Substance: INSULIN LISPRO
     Dosage: 2-10 UNITS BEFORE MEALS AND AT BED TIME)
     Route: 058
     Dates: start: 20160627, end: 20160628
  18. LOPRESSOR [Concomitant]
     Active Substance: METOPROLOL TARTRATE
     Dosage: 3.5 MG, SINGLE
     Route: 042
     Dates: start: 20160627, end: 20160627
  19. ZOFRAN-ODT [Concomitant]
     Indication: NAUSEA
     Dosage: 4 MG, AS NEEDED (EVERY 4 HOURS)
     Route: 048
     Dates: start: 20160627
  20. LANOXIN [Concomitant]
     Active Substance: DIGOXIN
     Dosage: 250 UG, SINGLE
     Route: 042
     Dates: start: 20160602, end: 20160602
  21. SODIUM CHLORIDE. [Concomitant]
     Active Substance: SODIUM CHLORIDE
     Dosage: 250 ML, AS NEEDED  (0.9%;250ML BOLUS; PRN COMMENT: BLOOD ADMINISTARTION)
     Route: 042
     Dates: start: 20160629, end: 20160711
  22. SODIUM CHLORIDE. [Concomitant]
     Active Substance: SODIUM CHLORIDE
     Dosage: 500 ML, SINGLE (0.9% SODIUM CHLORIDE 500 ML BOLUS)
     Route: 042
     Dates: start: 20160629, end: 20160629
  23. TYLENOL [Concomitant]
     Active Substance: ACETAMINOPHEN
     Indication: PYREXIA
  24. LIPITOR [Concomitant]
     Active Substance: ATORVASTATIN CALCIUM
     Indication: HYPERCHOLESTEROLAEMIA
     Dosage: 40 MG, DAILY
     Route: 048
     Dates: start: 20160628
  25. DULCOLAX NOS [Concomitant]
     Active Substance: BISACODYL OR DOCUSATE SODIUM
     Indication: CONSTIPATION
     Dosage: 10 MG, DAILY AS NEEDED
     Route: 054
     Dates: start: 20160629
  26. ZOFRAN [Concomitant]
     Active Substance: ONDANSETRON HYDROCHLORIDE
     Indication: VOMITING
  27. ZOFRAN-ODT [Concomitant]
     Indication: VOMITING
  28. SODIUM BICARBONATE. [Concomitant]
     Active Substance: SODIUM BICARBONATE
     Indication: RENAL DISORDER
     Dosage: 1300 MG, 2X/DAY
     Route: 048
     Dates: start: 20160627, end: 20160629
  29. FERROUS SULFATE. [Concomitant]
     Active Substance: FERROUS SULFATE
     Indication: IRON DEFICIENCY
     Dosage: 325 MG, DAILY
     Route: 048
     Dates: start: 20160628
  30. PROAMATINE [Concomitant]
     Active Substance: MIDODRINE HYDROCHLORIDE
     Indication: HYPOTENSION
     Dosage: 10 MG, 2X/DAY
     Dates: start: 20160628
  31. ZOSYN [Concomitant]
     Active Substance: PIPERACILLIN SODIUM\TAZOBACTAM SODIUM
     Dosage: 3.375 G, 3X/DAY (3.375 G IN 0.9% SODIUM CHLORIDE)
     Route: 042
     Dates: start: 20160627, end: 20160627
  32. MEPHYTON [Concomitant]
     Active Substance: PHYTONADIONE
     Dosage: 5 MG, SINGLE
     Route: 048
     Dates: start: 20160628, end: 20160628
  33. PHYTOMENADIONE [Suspect]
     Active Substance: PHYTONADIONE
     Indication: INTERNATIONAL NORMALISED RATIO INCREASED
     Dosage: 5 MG, SINGLE, ^ONE TIME DOSE^ (IN NS 100ML)
     Route: 042
     Dates: start: 20160629, end: 20160629
  34. ZOLOFT [Concomitant]
     Active Substance: SERTRALINE HYDROCHLORIDE
     Indication: DEPRESSION
     Dosage: 100 MG, DAILY
     Route: 048
     Dates: start: 20160628

REACTIONS (5)
  - Respiratory failure [Unknown]
  - Bradycardia [Unknown]
  - Cardiogenic shock [Unknown]
  - Ventricular fibrillation [Unknown]
  - Cardio-respiratory arrest [Not Recovered/Not Resolved]

NARRATIVE: CASE EVENT DATE: 20160629
